FAERS Safety Report 25820690 (Version 1)
Quarter: 2025Q3

REPORT INFORMATION
  Report Type: Spontaneous
  Country: JP (occurrence: JP)
  Receive Date: 20250919
  Receipt Date: 20250919
  Transmission Date: 20251021
  Serious: Yes (Hospitalization)
  Sender: MERCK SHARP & DOHME LLC
  Company Number: JP-009507513-2328876

PATIENT
  Age: 76 Year
  Sex: Female
  Weight: 50.8 kg

DRUGS (10)
  1. KEYTRUDA [Suspect]
     Active Substance: PEMBROLIZUMAB
     Indication: Cervix carcinoma recurrent
     Route: 041
     Dates: start: 20250722, end: 20250722
  2. PACLITAXEL [Suspect]
     Active Substance: PACLITAXEL
     Indication: Cervix carcinoma recurrent
     Route: 041
     Dates: start: 20250722, end: 20250722
  3. CARBOPLATIN [Suspect]
     Active Substance: CARBOPLATIN
     Indication: Cervix carcinoma recurrent
     Route: 041
     Dates: start: 20250722, end: 20250722
  4. Merislon tablet 12 mg [Concomitant]
  5. Adalat CR Tablet 20mg [Concomitant]
  6. Ifenprodil tartrate tablet 10 mg [Concomitant]
  7. Bonalon oral gel 35 mg [Concomitant]
  8. Decadron tablet 4 mg [Concomitant]
     Dates: start: 20250723, end: 20250724
  9. Metoclopramide tablet 5 mg [Concomitant]
     Dates: start: 20250727, end: 20250730
  10. Zyprexa tablet 2.5 mg [Concomitant]
     Dates: start: 20250728, end: 20250729

REACTIONS (1)
  - Drug eruption [Recovering/Resolving]

NARRATIVE: CASE EVENT DATE: 20250730
